FAERS Safety Report 24571594 (Version 1)
Quarter: 2024Q4

REPORT INFORMATION
  Report Type: Spontaneous
  Country: GB (occurrence: GB)
  Receive Date: 20241101
  Receipt Date: 20241101
  Transmission Date: 20250114
  Serious: Yes (Disabling, Other)
  Sender: AUROBINDO
  Company Number: GB-MHRA-MED-202206212125038800-MSQNT

PATIENT
  Age: 52 Year
  Sex: Female
  Weight: 51 kg

DRUGS (3)
  1. ROPINIROLE [Suspect]
     Active Substance: ROPINIROLE
     Indication: Restless legs syndrome
     Dosage: UNK
     Route: 065
     Dates: start: 20100101, end: 20210801
  2. ROPINIROLE [Suspect]
     Active Substance: ROPINIROLE
     Indication: Restless legs syndrome
     Dosage: UNK
     Route: 065
     Dates: start: 20100101, end: 20210801
  3. ROPINIROLE [Suspect]
     Active Substance: ROPINIROLE
     Dosage: 2 MILLIGRAM, ONCE A DAY (2MG ONCE A DAY AT NIGHT)
     Route: 065
     Dates: start: 20111104, end: 20230202

REACTIONS (3)
  - Restlessness [Recovered/Resolved with Sequelae]
  - Restless leg augmentation syndrome [Recovered/Resolved with Sequelae]
  - Medication error [Unknown]

NARRATIVE: CASE EVENT DATE: 20160607
